FAERS Safety Report 9327609 (Version 1)
Quarter: 2013Q2

REPORT INFORMATION
  Report Type: Spontaneous
  Country: US (occurrence: US)
  Receive Date: 20130604
  Receipt Date: 20130604
  Transmission Date: 20140414
  Serious: No
  Sender: FDA-Public Use
  Company Number: US-AMGEN-USASP2013035258

PATIENT
  Sex: 0

DRUGS (8)
  1. ENBREL [Suspect]
     Indication: PRODUCT USED FOR UNKNOWN INDICATION
     Dosage: UNK
     Dates: start: 20121112
  2. SIMPONI [Concomitant]
     Dosage: 50 MG, QMO
     Dates: start: 20130424
  3. METHOTREXATE [Concomitant]
     Dosage: 2.5 MG, QWK
  4. FOLIC ACID [Concomitant]
     Dosage: 1 MG, QD
  5. VITAMIN D                          /00107901/ [Concomitant]
     Dosage: 1000 UNIT, QD
  6. DIFLORASONE DIACETATE [Concomitant]
     Dosage: 0.05 %, AS NECESSARY BUT NOT MORE THAN TWICE DAILY
  7. VYTORIN [Concomitant]
     Dosage: 10/20 MG, DAILY
  8. LISINOPRIL [Concomitant]
     Dosage: 10 MG, QD

REACTIONS (2)
  - Drug effect incomplete [Unknown]
  - Psoriasis [Unknown]
